FAERS Safety Report 4978592-3 (Version None)
Quarter: 2006Q2

REPORT INFORMATION
  Report Type: 
  Country: None (occurrence: None)
  Receive Date: 20060420
  Receipt Date: 20060113
  Transmission Date: 20061013
  Serious: Yes (Death, Life-Threatening, Hospitalization)
  Sender: FDA-Public Use
  Company Number: US-MERCK-0601USA01668

PATIENT
  Age: 65 Year
  Sex: Female
  Weight: 61 kg

DRUGS (10)
  1. VIOXX [Suspect]
     Indication: RHEUMATOID ARTHRITIS
     Route: 048
     Dates: start: 20000530, end: 20031029
  2. ACTONEL [Concomitant]
     Route: 065
  3. SULFASALAZINE [Concomitant]
     Indication: INFLAMMATION
     Route: 065
  4. FOLIC ACID [Concomitant]
     Indication: FOLATE DEFICIENCY
     Route: 065
  5. PREDNISONE [Concomitant]
     Indication: INFLAMMATION
     Route: 065
  6. METHOTREXATE [Concomitant]
     Indication: RHEUMATOID ARTHRITIS
     Route: 065
     Dates: start: 19980602, end: 20030924
  7. TEQUIN [Concomitant]
     Route: 065
  8. FOSAMAX [Concomitant]
     Indication: BONE FORMATION INCREASED
     Route: 048
  9. ZITHROMAX [Concomitant]
     Indication: INFECTION
     Route: 065
  10. ALBUTEROL [Concomitant]
     Route: 065

REACTIONS (1)
  - CEREBROVASCULAR ACCIDENT [None]
